FAERS Safety Report 4348987-X (Version None)
Quarter: 2004Q2

REPORT INFORMATION
  Report Type: 
  Country: None (occurrence: None)
  Receive Date: 20040427
  Receipt Date: 20040427
  Transmission Date: 20050107
  Serious: Yes (Hospitalization)
  Sender: FDA-Public Use
  Company Number: None

PATIENT
  Age: 69 Year
  Sex: Male
  Weight: 77.1115 kg

DRUGS (11)
  1. CISPLATIN [Suspect]
     Indication: SMALL CELL LUNG CANCER STAGE UNSPECIFIED
     Dosage: 60MG, M2 Q 3 WK X 4 IV
     Route: 042
     Dates: start: 20040406
  2. ETOPOSIDE [Suspect]
     Dosage: 120 MG/M2 Q 3 WK D 1-3 X 4 IV
     Route: 042
     Dates: start: 20040406, end: 20040409
  3. INSULIN [Concomitant]
  4. PREVACID [Concomitant]
  5. CARAFATE [Concomitant]
  6. OXYCODONE [Concomitant]
  7. CIPRO [Concomitant]
  8. MS CONTIN [Concomitant]
  9. AMBIEN [Concomitant]
  10. NEXIUM [Concomitant]
  11. CLARINEX [Concomitant]

REACTIONS (5)
  - CHILLS [None]
  - MALNUTRITION [None]
  - OXYGEN SATURATION DECREASED [None]
  - PYREXIA [None]
  - SEPSIS [None]
